FAERS Safety Report 5538222-9 (Version None)
Quarter: 2007Q4

REPORT INFORMATION
  Report Type: 
  Country: None (occurrence: None)
  Receive Date: 20071207
  Receipt Date: 20071128
  Transmission Date: 20080405
  Serious: Yes (Hospitalization)
  Sender: FDA-Public Use
  Company Number: GR-ABBOTT-07P-066-0420803-00

PATIENT
  Sex: Female
  Weight: 72 kg

DRUGS (14)
  1. ZEMPLAR [Suspect]
     Indication: HYPERPARATHYROIDISM SECONDARY
     Route: 042
     Dates: start: 20070510, end: 20070828
  2. ZEMPLAR [Suspect]
     Route: 042
     Dates: start: 20070314, end: 20070509
  3. INTELLECTA [Concomitant]
     Indication: HYPOVITAMINOSIS
     Route: 042
     Dates: start: 19980526
  4. CERNEVIT-12 [Concomitant]
     Indication: HYPOVITAMINOSIS
     Route: 042
     Dates: start: 19980526
  5. SEVELAMER [Concomitant]
     Indication: HYPERPHOSPHATAEMIA
     Route: 048
     Dates: start: 20000501
  6. AMPS ARANESP 30 [Concomitant]
     Indication: ANAEMIA
     Route: 042
     Dates: start: 20030601
  7. SACCHARATED IRON OXIDE [Concomitant]
     Indication: IRON DEFICIENCY ANAEMIA
     Route: 042
     Dates: start: 20070412
  8. CLOPIDOGREL [Concomitant]
     Indication: THROMBOSIS PROPHYLAXIS
     Route: 048
     Dates: start: 20070101
  9. CLOPIDOGREL [Concomitant]
  10. CLONAZEPAM [Concomitant]
     Indication: URAEMIC NEUROPATHY
     Route: 048
     Dates: start: 20070101
  11. RANITIDINE HYDROCHLORIDE [Concomitant]
     Indication: GASTRITIS
     Route: 048
     Dates: start: 20070101
  12. MEGACALCIUM TABLETS [Concomitant]
     Indication: RENAL FAILURE CHRONIC
     Route: 048
     Dates: start: 20070701, end: 20070828
  13. CINACALCET [Concomitant]
     Indication: RENAL FAILURE CHRONIC
     Route: 048
     Dates: start: 20070704, end: 20070712
  14. DARBEPOETIN ALFA [Concomitant]
     Indication: ANAEMIA
     Route: 042
     Dates: start: 20071023

REACTIONS (7)
  - ABSCESS [None]
  - BACK PAIN [None]
  - INTERVERTEBRAL DISCITIS [None]
  - METASTASES TO BONE [None]
  - MUSCLE ABSCESS [None]
  - PYREXIA [None]
  - STAPHYLOCOCCAL BACTERAEMIA [None]
